FAERS Safety Report 11152998 (Version 1)
Quarter: 2015Q2

REPORT INFORMATION
  Report Type: Spontaneous
  Country: US (occurrence: US)
  Receive Date: 20150601
  Receipt Date: 20150601
  Transmission Date: 20150821
  Serious: Yes (Hospitalization, Other)
  Sender: FDA-Public Use
  Company Number: US-TARO-2015TAR00486

PATIENT
  Age: 94 Year
  Sex: Female
  Weight: 72.56 kg

DRUGS (6)
  1. GLIPIZIDE. [Concomitant]
     Active Substance: GLIPIZIDE
  2. UNSPECIFIED BLOOD PRESSURE MEDICATION [Concomitant]
     Active Substance: UNSPECIFIED INGREDIENT
     Dosage: 800 MG, UNK
  3. CARBAMAZEPINE TABLETS USP 200 MG [Suspect]
     Active Substance: CARBAMAZEPINE
     Indication: SEIZURE
     Dosage: 200 MG, 2X/DAY
     Route: 048
  4. FISH OIL [Concomitant]
     Active Substance: FISH OIL
  5. NEURONTIN [Concomitant]
     Active Substance: GABAPENTIN
     Dosage: UNK MG, UNK
  6. UNSPECIFIED HIGH CHOLESTEROL MEDICATION [Concomitant]
     Active Substance: UNSPECIFIED INGREDIENT

REACTIONS (15)
  - Seizure [Recovering/Resolving]
  - Confusional state [Recovering/Resolving]
  - Status epilepticus [Recovering/Resolving]
  - Metabolic encephalopathy [Recovering/Resolving]
  - Cerebral infarction [Recovering/Resolving]
  - Cardiac failure congestive [Unknown]
  - Restlessness [Recovering/Resolving]
  - Hypomagnesaemia [Unknown]
  - Lethargy [Recovering/Resolving]
  - Drug ineffective [None]
  - Tachycardia [Unknown]
  - Hypertension [Unknown]
  - Anticonvulsant drug level decreased [Unknown]
  - Aphasia [Recovering/Resolving]
  - Hypokalaemia [Not Recovered/Not Resolved]

NARRATIVE: CASE EVENT DATE: 20141230
